FAERS Safety Report 5822926-4 (Version None)
Quarter: 2008Q3

REPORT INFORMATION
  Report Type: 
  Country: None (occurrence: None)
  Receive Date: 20080725
  Receipt Date: 20071203
  Transmission Date: 20090109
  Serious: Yes (Other)
  Sender: FDA-Public Use
  Company Number: IT-JNJFOC-20080704844

PATIENT
  Sex: Female

DRUGS (1)
  1. REMICADE [Suspect]
     Indication: JUVENILE ARTHRITIS
     Route: 042

REACTIONS (2)
  - HISTIOCYTOSIS HAEMATOPHAGIC [None]
  - PNEUMONIA CYTOMEGALOVIRAL [None]
